FAERS Safety Report 6717934-5 (Version None)
Quarter: 2010Q2

REPORT INFORMATION
  Report Type: 
  Country: None (occurrence: None)
  Receive Date: 20100510
  Receipt Date: 20100427
  Transmission Date: 20101027
  Serious: Yes (Disabling)
  Sender: FDA-Public Use
  Company Number: PHHY2010JP29044

PATIENT
  Age: 43 Year
  Sex: Male

DRUGS (3)
  1. RASILEZ [Suspect]
     Indication: HYPERTENSION
     Dosage: 150MG DAILY
     Route: 048
     Dates: start: 20100312
  2. RENIVACE [Concomitant]
     Dosage: 20 MG
     Route: 048
  3. ARTIST [Concomitant]
     Dosage: 10 MG
     Route: 048

REACTIONS (1)
  - RENAL IMPAIRMENT [None]
